FAERS Safety Report 14359236 (Version 1)
Quarter: 2018Q1

REPORT INFORMATION
  Report Type: Spontaneous
  Country: GB (occurrence: IT)
  Receive Date: 20180105
  Receipt Date: 20180105
  Transmission Date: 20180509
  Serious: Yes (Hospitalization)
  Sender: FDA-Public Use
  Company Number: IT-FRESENIUS KABI-FK201800068

PATIENT
  Age: 75 Year
  Sex: Female

DRUGS (3)
  1. CANRENONE [Concomitant]
     Active Substance: CANRENONE
     Indication: PRODUCT USED FOR UNKNOWN INDICATION
     Route: 042
  2. LEVOFLOXACIN KABI 5 MG / ML [Suspect]
     Active Substance: LEVOFLOXACIN
     Indication: ANTIBIOTIC THERAPY
     Route: 042
     Dates: start: 20171015, end: 20171018
  3. FUROSEMIDE. [Concomitant]
     Active Substance: FUROSEMIDE
     Indication: PRODUCT USED FOR UNKNOWN INDICATION
     Route: 042

REACTIONS (3)
  - Confusional state [Recovered/Resolved]
  - Hallucination [Recovered/Resolved]
  - Clonus [Recovered/Resolved]

NARRATIVE: CASE EVENT DATE: 20171018
